FAERS Safety Report 9119896 (Version 1)
Quarter: 2013Q1

REPORT INFORMATION
  Report Type: Spontaneous
  Country: US (occurrence: US)
  Receive Date: 20130226
  Receipt Date: 20130226
  Transmission Date: 20140127
  Serious: Yes (Hospitalization)
  Sender: FDA-Public Use
  Company Number: US-009507513-1302USA011882

PATIENT
  Sex: 0

DRUGS (2)
  1. SAPHRIS [Suspect]
     Dosage: RAPID DISSOLVE 10 ,20 MG TAKEN ONCE DAILY, BLACK CHERRY FLAVOURED
     Route: 060
  2. SAPHRIS [Suspect]
     Dosage: 10 MG, BID
     Route: 060

REACTIONS (1)
  - Tremor [Unknown]
